FAERS Safety Report 9698834 (Version 1)
Quarter: 2013Q4

REPORT INFORMATION
  Report Type: Spontaneous
  Country: CN (occurrence: CN)
  Receive Date: 20131120
  Receipt Date: 20131120
  Transmission Date: 20140711
  Serious: Yes (Hospitalization, Other)
  Sender: FDA-Public Use
  Company Number: CN-BAXTER-2013BAX045602

PATIENT
  Age: 37 Year
  Sex: Female
  Weight: 58 kg

DRUGS (2)
  1. PERITONEAL DIALYSIS SOLUTION (LACTATE- G 1.5%) [Suspect]
     Indication: RENAL FAILURE
     Route: 033
     Dates: start: 20090902
  2. PERITONEAL DIALYSIS SOLUTION (LACTATE- G2.5%) [Suspect]
     Indication: RENAL FAILURE
     Route: 033
     Dates: start: 20090902

REACTIONS (2)
  - Condition aggravated [Unknown]
  - Peritonitis [Not Recovered/Not Resolved]
